FAERS Safety Report 16284141 (Version 1)
Quarter: 2019Q2

REPORT INFORMATION
  Report Type: Spontaneous
  Country: US (occurrence: US)
  Receive Date: 20190507
  Receipt Date: 20190507
  Transmission Date: 20190711
  Serious: Yes (Other)
  Sender: FDA-Public Use
  Company Number: US-BAXTER-2019BAX008913

PATIENT
  Sex: Male

DRUGS (1)
  1. MILRINONE LACTATE IN 5% DEXTROSE INJECTION [Suspect]
     Active Substance: MILRINONE LACTATE
     Indication: PRODUCT USED FOR UNKNOWN INDICATION
     Route: 041

REACTIONS (3)
  - Atrial fibrillation [Unknown]
  - Cardiac failure chronic [Unknown]
  - Ischaemic cardiomyopathy [Unknown]
